FAERS Safety Report 6227921-1 (Version None)
Quarter: 2009Q2

REPORT INFORMATION
  Report Type: 
  Country: None (occurrence: None)
  Receive Date: 20090612
  Receipt Date: 20090602
  Transmission Date: 20091009
  Serious: Yes (Other)
  Sender: FDA-Public Use
  Company Number: US-JNJFOC-20090402626

PATIENT
  Sex: Female
  Weight: 64.41 kg

DRUGS (10)
  1. REMICADE [Suspect]
     Route: 042
  2. REMICADE [Suspect]
     Route: 042
  3. REMICADE [Suspect]
     Indication: RHEUMATOID ARTHRITIS
     Route: 042
  4. PREDNISONE [Suspect]
     Indication: DRUG USE FOR UNKNOWN INDICATION
     Route: 048
  5. PAXIL [Concomitant]
     Indication: DRUG USE FOR UNKNOWN INDICATION
     Route: 048
  6. PANTOPRAZOLE SODIUM [Concomitant]
     Route: 048
  7. HYDROXYCHLOR [Concomitant]
     Route: 048
  8. NAPROSYN [Concomitant]
     Route: 048
  9. METHOTREXATE [Concomitant]
     Route: 048
  10. FOLIC ACID [Concomitant]
     Route: 048

REACTIONS (11)
  - ARTHRALGIA [None]
  - DRUG INEFFECTIVE [None]
  - DRY EYE [None]
  - DRY MOUTH [None]
  - DYSPNOEA [None]
  - NASAL OEDEMA [None]
  - PAIN IN EXTREMITY [None]
  - SWELLING FACE [None]
  - SWOLLEN TONGUE [None]
  - TONGUE BLISTERING [None]
  - VISUAL ACUITY REDUCED [None]
